FAERS Safety Report 4623494-5 (Version None)
Quarter: 2005Q1

REPORT INFORMATION
  Report Type: 
  Country: None (occurrence: None)
  Receive Date: 20050330
  Receipt Date: 20050403
  Transmission Date: 20050727
  Serious: Yes (Other)
  Sender: FDA-Public Use
  Company Number: 000#8#2005-00199

PATIENT
  Age: 74 Year
  Sex: Male

DRUGS (4)
  1. NITROGLYCERIN [Suspect]
     Indication: TILT TABLE TEST
     Dosage: 400 MCG
     Route: 060
  2. BENDROFLUAZIDE (BENDROFLUAZIDE) [Concomitant]
  3. SIMVASTATIN [Concomitant]
  4. THYROXINE (LEVOTHYROXINE SODIUM) [Concomitant]

REACTIONS (12)
  - ACUTE CORONARY SYNDROME [None]
  - CORONARY ARTERY DISEASE [None]
  - CORONARY ARTERY OCCLUSION [None]
  - CORONARY ARTERY STENOSIS [None]
  - DIZZINESS [None]
  - ELECTROCARDIOGRAM ST SEGMENT DEPRESSION [None]
  - EXTRASYSTOLES [None]
  - HYPERHIDROSIS [None]
  - HYPERTENSION [None]
  - HYPOTENSION [None]
  - MYOCARDIAL INFARCTION [None]
  - VASCULAR CALCIFICATION [None]
